FAERS Safety Report 7503459-6 (Version None)
Quarter: 2011Q2

REPORT INFORMATION
  Report Type: 
  Country: None (occurrence: None)
  Receive Date: 20110525
  Receipt Date: 20110518
  Transmission Date: 20111010
  Serious: Yes (Hospitalization)
  Sender: FDA-Public Use
  Company Number: JP-PFIZER INC-2011085847

PATIENT
  Age: 79 Year
  Sex: Male

DRUGS (5)
  1. VOLTAREN [Concomitant]
     Indication: PAIN
     Route: 048
  2. LIPIODOL ULTRA-FLUID [Concomitant]
     Indication: THERAPEUTIC EMBOLISATION
     Dosage: 10 ML, UNK
     Dates: start: 20110413
  3. GELPART [Concomitant]
     Indication: THERAPEUTIC EMBOLISATION
     Dosage: UNK
     Dates: start: 20110413
  4. EPIRUBICIN HYDROCHLORIDE [Suspect]
     Indication: THERAPEUTIC EMBOLISATION
     Dosage: 50 MG, UNK
     Route: 013
     Dates: start: 20110413
  5. VOLTAREN [Concomitant]
     Indication: PYREXIA

REACTIONS (1)
  - RENAL FAILURE ACUTE [None]
